FAERS Safety Report 24253106 (Version 2)
Quarter: 2024Q3

REPORT INFORMATION
  Report Type: Spontaneous
  Country: DE (occurrence: DE)
  Receive Date: 20240827
  Receipt Date: 20240913
  Transmission Date: 20241017
  Serious: Yes (Other)
  Sender: AUROBINDO
  Company Number: DE-SANDOZ-SDZ2024DE000194

PATIENT
  Sex: Male
  Weight: 136.2 kg

DRUGS (17)
  1. AMLODIPINE [Suspect]
     Active Substance: AMLODIPINE BESYLATE
     Indication: Product used for unknown indication
     Dosage: 5 MG, QD, 1-0-0,
     Route: 065
     Dates: start: 2014
  2. HYDROCORTISONE [Suspect]
     Active Substance: HYDROCORTISONE\HYDROCORTISONE ACETATE
     Indication: Product used for unknown indication
     Dosage: UNK
     Route: 065
     Dates: start: 2013
  3. IBUPROFEN [Suspect]
     Active Substance: IBUPROFEN
     Indication: Product used for unknown indication
     Dosage: 600 MG
     Route: 065
     Dates: start: 2014
  4. METFORMIN [Suspect]
     Active Substance: METFORMIN HYDROCHLORIDE
     Indication: Product used for unknown indication
     Dosage: 2000 MILLIGRAM ONCE A DAY, 1000 MG, BID, (1-0-1)
     Route: 065
     Dates: start: 2013
  5. RAMIPRIL [Suspect]
     Active Substance: RAMIPRIL
     Indication: Product used for unknown indication
     Dosage: 5 MILLIGRAM ONCE A DAY (5 MG, QD; 0-0-1)
     Route: 065
     Dates: start: 2012
  6. RAMIPRIL [Suspect]
     Active Substance: RAMIPRIL
     Dosage: UNK UNK, ONCE A DAY (5/25 MG, 1-0-0  , ONCE A DAY)
     Route: 065
     Dates: start: 2014
  7. RAMIPRIL [Suspect]
     Active Substance: RAMIPRIL
     Dosage: UNK UNK, ONCE A DAY (5/25 MG, 1-0-0)
     Route: 065
     Dates: start: 2014
  8. SILDENAFIL [Suspect]
     Active Substance: SILDENAFIL
     Indication: Product used for unknown indication
     Dosage: 50 MG
     Route: 065
     Dates: start: 2022
  9. SIMVASTATIN [Suspect]
     Active Substance: SIMVASTATIN
     Indication: Product used for unknown indication
     Dosage: 40 MILLIGRAM ONCE A DAY(40 MG, QD,  0-0-1,)
     Route: 065
     Dates: start: 2014
  10. DESMOPRESSIN [Suspect]
     Active Substance: DESMOPRESSIN
     Indication: Product used for unknown indication
     Dosage: UNK, BID (1-0-1 STROKE) , ONCE A DAY
     Route: 045
     Dates: start: 2013
  11. JARDIANCE [Suspect]
     Active Substance: EMPAGLIFLOZIN
     Indication: Product used for unknown indication
     Dosage: 20 MILLIGRAM  ONCE A DAY(10 MG, BID (1-0-1))
     Route: 065
     Dates: start: 2021
  12. LEVOTHYROXINE [Suspect]
     Active Substance: LEVOTHYROXINE\LEVOTHYROXINE SODIUM
     Indication: Product used for unknown indication
     Dosage: 175 UG
     Route: 065
     Dates: start: 2013
  13. NEBIDO [Suspect]
     Active Substance: TESTOSTERONE UNDECANOATE
     Indication: Product used for unknown indication
     Dosage: 1000 MG, EVERY 16 WEEKS
     Route: 030
     Dates: start: 2013
  14. OMNITROPE [Suspect]
     Active Substance: SOMATROPIN
     Indication: Growth hormone deficiency
     Dosage: 0.4 MG
     Route: 058
     Dates: start: 2013
  15. OMNITROPE [Suspect]
     Active Substance: SOMATROPIN
     Dosage: 0.4 MG
     Route: 058
     Dates: start: 201310, end: 20231120
  16. OMEPRAZOLE [Suspect]
     Active Substance: OMEPRAZOLE
     Indication: Product used for unknown indication
     Dosage: 40 MG
     Route: 065
     Dates: start: 2014
  17. VICTOZA [Suspect]
     Active Substance: LIRAGLUTIDE
     Indication: Product used for unknown indication
     Dosage: 1.8 MILLIGRAM ONCE A DAY (1.8 MG, QD,  1-0-0)
     Route: 065
     Dates: start: 2014

REACTIONS (14)
  - Diabetes insipidus [Unknown]
  - Filariasis lymphatic [Unknown]
  - Type 2 diabetes mellitus [Unknown]
  - Embolism [Unknown]
  - Transient ischaemic attack [Recovering/Resolving]
  - Coronary artery disease [Unknown]
  - Hypertension [Unknown]
  - Hypophysitis [Unknown]
  - Obesity [Unknown]
  - Obstructive airways disorder [Unknown]
  - Polycythaemia [Unknown]
  - Sleep apnoea syndrome [Unknown]
  - Haematocrit increased [Recovered/Resolved]
  - Tobacco abuse [Unknown]

NARRATIVE: CASE EVENT DATE: 20230101
